FAERS Safety Report 19174972 (Version 1)
Quarter: 2021Q2

REPORT INFORMATION
  Report Type: Spontaneous
  Country: MX (occurrence: MX)
  Receive Date: 20210423
  Receipt Date: 20210423
  Transmission Date: 20210717
  Serious: Yes (Death)
  Sender: FDA-Public Use
  Company Number: MX-PFIZER INC-2021449558

PATIENT
  Age: 5 Decade
  Sex: Female

DRUGS (1)
  1. HALCION [Suspect]
     Active Substance: TRIAZOLAM
     Indication: DEPRESSION
     Dosage: UNK

REACTIONS (5)
  - Somnolence [Unknown]
  - Off label use [Unknown]
  - Depression [Fatal]
  - Insomnia [Unknown]
  - Drug effective for unapproved indication [Unknown]
